FAERS Safety Report 25464364 (Version 1)
Quarter: 2025Q2

REPORT INFORMATION
  Report Type: Spontaneous
  Country: JP (occurrence: JP)
  Receive Date: 20250621
  Receipt Date: 20250621
  Transmission Date: 20250716
  Serious: Yes (Life-Threatening, Hospitalization)
  Sender: ACCORD
  Company Number: JP-MLMSERVICE-20250602-PI528618-00082-1

PATIENT
  Age: 74 Year
  Sex: Female

DRUGS (8)
  1. CARBOPLATIN [Suspect]
     Active Substance: CARBOPLATIN
     Indication: Keratinising squamous cell carcinoma of nasopharynx
     Dosage: SECOND-LINE CHEMOTHERAPY, AUC - 5 (DAY 1)
  2. CETUXIMAB [Concomitant]
     Active Substance: CETUXIMAB
     Indication: Keratinising squamous cell carcinoma of nasopharynx
     Dosage: SECOND-LINE CHEMOTHERAPY, 400 MG/M2 (DAY 1), AND 250 MG/M2 (DAY 8,15)
  3. DEXAMETHASONE [Concomitant]
     Active Substance: DEXAMETHASONE
  4. FLUOROURACIL [Concomitant]
     Active Substance: FLUOROURACIL
     Indication: Keratinising squamous cell carcinoma of nasopharynx
  5. FOSNETUPITANT [Concomitant]
     Active Substance: FOSNETUPITANT
     Indication: Antiemetic supportive care
  6. PALONOSETRON HYDROCHLORIDE [Concomitant]
     Active Substance: PALONOSETRON HYDROCHLORIDE
     Indication: Antiemetic supportive care
  7. DEXAMETHASONE [Concomitant]
     Active Substance: DEXAMETHASONE
     Dosage: 6.6 MG DAY 2-4
  8. CETUXIMAB [Concomitant]
     Active Substance: CETUXIMAB
     Indication: Keratinising squamous cell carcinoma of nasopharynx
     Dosage: SECOND-LINE CHEMOTHERAPY, 400 MG/M2 (DAY 1), AND 250 MG/M2 (DAY 8,15)

REACTIONS (2)
  - Inappropriate antidiuretic hormone secretion [Recovering/Resolving]
  - Altered state of consciousness [Recovering/Resolving]
